FAERS Safety Report 10384499 (Version 2)
Quarter: 2014Q3

REPORT INFORMATION
  Report Type: Spontaneous
  Country: US (occurrence: US)
  Receive Date: 20140814
  Receipt Date: 20140923
  Transmission Date: 20150326
  Serious: Yes (Hospitalization)
  Sender: FDA-Public Use
  Company Number: US-TAKEDA-2014TUS006967

PATIENT
  Age: 18 Year
  Sex: Male
  Weight: 85.7 kg

DRUGS (3)
  1. ENTYVIO [Suspect]
     Active Substance: VEDOLIZUMAB
     Dosage: UNK, SECOND DOSE
     Route: 042
     Dates: start: 201406, end: 201406
  2. ENTYVIO [Suspect]
     Active Substance: VEDOLIZUMAB
     Indication: CROHN^S DISEASE
     Dosage: UNK, FIRST DOSE
     Route: 042
     Dates: start: 201406, end: 201406
  3. CORTICOSTEROIDS [Concomitant]
     Active Substance: CORTICOSTEROID NOS

REACTIONS (2)
  - Dermatitis infected [Not Recovered/Not Resolved]
  - Dermatosis [Not Recovered/Not Resolved]

NARRATIVE: CASE EVENT DATE: 20140714
